FAERS Safety Report 20224500 (Version 2)
Quarter: 2022Q1

REPORT INFORMATION
  Report Type: Spontaneous
  Country: FI (occurrence: FI)
  Receive Date: 20211223
  Receipt Date: 20220202
  Transmission Date: 20220423
  Serious: Yes (Other)
  Sender: FDA-Public Use
  Company Number: FI-MYLANLABS-2021M1082479

PATIENT
  Age: 49 Year
  Sex: Female
  Weight: 144.6 kg

DRUGS (13)
  1. METFORMIN [Suspect]
     Active Substance: METFORMIN HYDROCHLORIDE
     Indication: Type 2 diabetes mellitus
     Dosage: 1000 MILLIGRAM, QD
  2. INSULIN GLARGINE [Suspect]
     Active Substance: INSULIN GLARGINE
     Indication: Type 2 diabetes mellitus
     Dosage: 80 INTERNATIONAL UNIT, BID
  3. INSULIN GLARGINE [Suspect]
     Active Substance: INSULIN GLARGINE
     Dosage: 30 INTERNATIONAL UNIT, QD
  4. INSULIN GLARGINE [Suspect]
     Active Substance: INSULIN GLARGINE
     Dosage: 50 INTERNATIONAL UNIT, QD
  5. INSULIN GLARGINE [Suspect]
     Active Substance: INSULIN GLARGINE
     Dosage: 35 INTERNATIONAL UNIT, QD
  6. AMLODIPINE [Suspect]
     Active Substance: AMLODIPINE BESYLATE
     Indication: Product used for unknown indication
     Dosage: 10 MILLIGRAM, QD
  7. VALSARTAN [Suspect]
     Active Substance: VALSARTAN
     Indication: Product used for unknown indication
     Dosage: 320 MILLIGRAM, QD
  8. INSULIN GLULISINE [Suspect]
     Active Substance: INSULIN GLULISINE
     Indication: Type 2 diabetes mellitus
     Dosage: 80 INTERNATIONAL UNIT, BID
     Route: 065
  9. HYDROCHLOROTHIAZIDE [Concomitant]
     Active Substance: HYDROCHLOROTHIAZIDE
     Dosage: 25 MILLIGRAM, QD
  10. ATORVASTATIN [Concomitant]
     Active Substance: ATORVASTATIN
     Dosage: 40 MILLIGRAM, QD
  11. ASPIRIN [Concomitant]
     Active Substance: ASPIRIN
     Dosage: 100 MILLIGRAM, QD
  12. VITAMIN D [Concomitant]
     Active Substance: VITAMIN D NOS
     Dosage: 100 MICROGRAM, 1-2 TIMES PER DAY
  13. VITAMIN D NOS [Concomitant]
     Active Substance: VITAMIN D NOS
     Dosage: 100 MICROGRAM,100 UG X 1-2

REACTIONS (7)
  - Diabetes mellitus inadequate control [Recovering/Resolving]
  - Fatigue [Recovering/Resolving]
  - Blood glucose fluctuation [Unknown]
  - Blood glucose decreased [Recovering/Resolving]
  - Hypoglycaemia [Recovered/Resolved]
  - Amenorrhoea [Unknown]
  - Drug ineffective [Recovering/Resolving]
